FAERS Safety Report 5127306-5 (Version None)
Quarter: 2006Q4

REPORT INFORMATION
  Report Type: 
  Country: None (occurrence: None)
  Receive Date: 20061013
  Receipt Date: 20061003
  Transmission Date: 20070319
  Serious: Yes (Other)
  Sender: FDA-Public Use
  Company Number: FI-ABBOTT-06P-055-0345783-00

PATIENT
  Age: 40 Year
  Sex: Male

DRUGS (3)
  1. DEPRAKINE DEPOT PROLONGED RELEASE TABLETS [Suspect]
     Indication: EPILEPSY
     Route: 048
     Dates: start: 20060601
  2. LAMOTRIGINE [Concomitant]
     Indication: EPILEPSY
     Route: 048
  3. CLONAZEPAM [Concomitant]
     Indication: EPILEPSY
     Route: 048

REACTIONS (4)
  - AFFECT LABILITY [None]
  - APRAXIA [None]
  - CONVULSION [None]
  - DRUG DISPENSING ERROR [None]
